FAERS Safety Report 8020642-4 (Version None)
Quarter: 2012Q1

REPORT INFORMATION
  Report Type: 
  Country: None (occurrence: None)
  Receive Date: 20120103
  Receipt Date: 20111222
  Transmission Date: 20120608
  Serious: Yes (Hospitalization)
  Sender: FDA-Public Use
  Company Number: BR-ASTRAZENECA-2010SE18040

PATIENT
  Age: 42 Year
  Sex: Female
  Weight: 83 kg

DRUGS (4)
  1. LOSARTAN POTASSIUM [Concomitant]
     Indication: HYPERTENSION
     Route: 048
  2. AMLOCOR [Concomitant]
     Indication: HYPERTENSION
  3. OLMETEC HCT [Concomitant]
     Indication: HYPERTENSION
     Dosage: 20/12.5 MG
     Route: 048
     Dates: start: 20090101, end: 20100330
  4. ZOLADEX [Suspect]
     Indication: UTERINE LEIOMYOMA
     Route: 058
     Dates: start: 20100323, end: 20110323

REACTIONS (7)
  - HEADACHE [None]
  - HYPERHIDROSIS [None]
  - FEELING COLD [None]
  - HYPERTENSION [None]
  - INSOMNIA [None]
  - TREMOR [None]
  - HOT FLUSH [None]
